FAERS Safety Report 8912285 (Version 2)
Quarter: 2013Q1

REPORT INFORMATION
  Report Type: Spontaneous
  Country: US (occurrence: None)
  Receive Date: 20121113
  Receipt Date: 20130207
  Transmission Date: 20140127
  Serious: Yes (Hospitalization, Other)
  Sender: FDA-Public Use
  Company Number: AUR-APL-2012-04799

PATIENT
  Age: 89 Year
  Sex: Male

DRUGS (3)
  1. AMOXICILLIN+CLAVULANIC ACID(AMOXICILLIN, CLAVULANIC ACID) [Suspect]
     Indication: APPENDICECTOMY
     Route: 048
  2. PIPERACILLIN AND TAZOBACTAM [Suspect]
     Indication: APPENDICECTOMY
     Route: 042
  3. NITROFURANTOIN [Suspect]
     Indication: APPENDICECTOMY

REACTIONS (6)
  - Diarrhoea [None]
  - Malaise [None]
  - Decreased appetite [None]
  - Weight decreased [None]
  - Culture stool positive [None]
  - Staphylococcus test positive [None]
